FAERS Safety Report 11128229 (Version 1)
Quarter: 2015Q2

REPORT INFORMATION
  Report Type: Spontaneous
  Country: JP (occurrence: JP)
  Receive Date: 20150521
  Receipt Date: 20150521
  Transmission Date: 20150821
  Serious: Yes (Other)
  Sender: FDA-Public Use
  Company Number: JP-CIPLA LTD.-2015JP03917

PATIENT

DRUGS (7)
  1. VINCRISTINE [Suspect]
     Active Substance: VINCRISTINE
     Indication: RETINOBLASTOMA
     Route: 065
  2. CARBOPLATIN. [Suspect]
     Active Substance: CARBOPLATIN
     Indication: RETINOBLASTOMA
     Dosage: 1600 MG/M2, UNK
     Route: 065
  3. CYCLOPHOSPHAMIDE. [Suspect]
     Active Substance: CYCLOPHOSPHAMIDE
     Indication: RETINOBLASTOMA
     Route: 065
  4. ETOPOSIDE INJECTION 6 MG/ ML [Suspect]
     Active Substance: ETOPOSIDE
     Indication: RETINOBLASTOMA
     Dosage: 800 MG/M2, UNK
     Route: 065
  5. CISPLATIN. [Suspect]
     Active Substance: CISPLATIN
     Indication: RETINOBLASTOMA
     Route: 065
  6. TETRAHYDROPYRANYL ADRIAMYCIN [Suspect]
     Active Substance: PIRARUBICIN
     Indication: RETINOBLASTOMA
     Route: 065
  7. MELPHALAN [Suspect]
     Active Substance: MELPHALAN
     Indication: RETINOBLASTOMA
     Dosage: 180 MG/M2, UNK
     Route: 065

REACTIONS (5)
  - Febrile neutropenia [Unknown]
  - Metastases to eye [Unknown]
  - Metastases to bone [Unknown]
  - Mucosal inflammation [Unknown]
  - Metastases to bone marrow [Unknown]
